FAERS Safety Report 25439160 (Version 1)
Quarter: 2025Q2

REPORT INFORMATION
  Report Type: Spontaneous
  Country: CA (occurrence: CA)
  Receive Date: 20250616
  Receipt Date: 20250616
  Transmission Date: 20250717
  Serious: Yes (Death, Life-Threatening, Hospitalization, Disabling, Other)
  Sender: Haleon PLC
  Company Number: CA-HALEON-2246815

PATIENT
  Age: 80 Year
  Sex: Male

DRUGS (203)
  1. FLONASE ALLERGY RELIEF [Suspect]
     Active Substance: FLUTICASONE PROPIONATE
     Indication: Product used for unknown indication
  2. FLONASE ALLERGY RELIEF [Suspect]
     Active Substance: FLUTICASONE PROPIONATE
     Indication: Nutritional supplementation
  3. ALLOPURINOL [Suspect]
     Active Substance: ALLOPURINOL
     Indication: Product used for unknown indication
     Route: 048
  4. ALLOPURINOL [Suspect]
     Active Substance: ALLOPURINOL
     Indication: Off label use
  5. ALLOPURINOL [Suspect]
     Active Substance: ALLOPURINOL
     Indication: Intentional product misuse
  6. ALLOPURINOL [Suspect]
     Active Substance: ALLOPURINOL
     Indication: Blood uric acid increased
  7. ALLOPURINOL [Suspect]
     Active Substance: ALLOPURINOL
     Indication: Product used for unknown indication
     Route: 048
  8. ALLOPURINOL [Suspect]
     Active Substance: ALLOPURINOL
     Indication: Off label use
     Route: 048
  9. ALLOPURINOL [Suspect]
     Active Substance: ALLOPURINOL
     Indication: Intentional product misuse
     Route: 048
  10. ALLOPURINOL [Suspect]
     Active Substance: ALLOPURINOL
     Indication: Blood uric acid increased
  11. ALLOPURINOL [Suspect]
     Active Substance: ALLOPURINOL
  12. ALLOPURINOL [Suspect]
     Active Substance: ALLOPURINOL
     Route: 048
  13. ALLOPURINOL [Suspect]
     Active Substance: ALLOPURINOL
  14. GABAPENTIN [Suspect]
     Active Substance: GABAPENTIN
     Indication: Product used for unknown indication
     Route: 048
  15. GABAPENTIN [Suspect]
     Active Substance: GABAPENTIN
     Indication: Off label use
     Route: 048
  16. GABAPENTIN [Suspect]
     Active Substance: GABAPENTIN
     Indication: Neuralgia
     Route: 048
  17. GABAPENTIN [Suspect]
     Active Substance: GABAPENTIN
     Indication: Intentional product misuse
  18. GABAPENTIN [Suspect]
     Active Substance: GABAPENTIN
     Route: 048
  19. HEPARIN SODIUM [Suspect]
     Active Substance: HEPARIN SODIUM
     Indication: Product used for unknown indication
     Route: 042
  20. HEPARIN SODIUM [Suspect]
     Active Substance: HEPARIN SODIUM
     Indication: Anticoagulant therapy
  21. HEPARIN SODIUM [Suspect]
     Active Substance: HEPARIN SODIUM
     Indication: Product used for unknown indication
     Route: 017
  22. HEPARIN SODIUM [Suspect]
     Active Substance: HEPARIN SODIUM
     Indication: Anticoagulant therapy
     Route: 042
  23. HEPARIN SODIUM [Suspect]
     Active Substance: HEPARIN SODIUM
     Route: 042
  24. HEPARIN SODIUM [Suspect]
     Active Substance: HEPARIN SODIUM
     Route: 017
  25. HEPARIN SODIUM [Suspect]
     Active Substance: HEPARIN SODIUM
     Route: 017
  26. HEPARIN SODIUM [Suspect]
     Active Substance: HEPARIN SODIUM
     Route: 042
  27. HEPARIN SODIUM [Suspect]
     Active Substance: HEPARIN SODIUM
     Route: 042
  28. HEPARIN SODIUM [Suspect]
     Active Substance: HEPARIN SODIUM
     Route: 042
  29. HEPARIN SODIUM [Suspect]
     Active Substance: HEPARIN SODIUM
     Route: 042
  30. HEPARIN SODIUM [Suspect]
     Active Substance: HEPARIN SODIUM
     Route: 042
  31. HEPARIN SODIUM [Suspect]
     Active Substance: HEPARIN SODIUM
     Route: 042
  32. HEPARIN SODIUM [Suspect]
     Active Substance: HEPARIN SODIUM
  33. HYDROMORPHONE [Suspect]
     Active Substance: HYDROMORPHONE
     Indication: Analgesic therapy
     Route: 058
  34. HYDROMORPHONE [Suspect]
     Active Substance: HYDROMORPHONE
     Route: 058
  35. HYDROMORPHONE [Suspect]
     Active Substance: HYDROMORPHONE
     Route: 058
  36. HYDROMORPHONE [Suspect]
     Active Substance: HYDROMORPHONE
     Route: 058
  37. HYDROMORPHONE [Suspect]
     Active Substance: HYDROMORPHONE
     Route: 058
  38. HYDROMORPHONE [Suspect]
     Active Substance: HYDROMORPHONE
     Route: 058
  39. HYDROMORPHONE [Suspect]
     Active Substance: HYDROMORPHONE
     Route: 058
  40. HYDROMORPHONE [Suspect]
     Active Substance: HYDROMORPHONE
  41. HYDROMORPHONE [Suspect]
     Active Substance: HYDROMORPHONE
  42. HYDROMORPHONE [Suspect]
     Active Substance: HYDROMORPHONE
  43. HYDROMORPHONE [Suspect]
     Active Substance: HYDROMORPHONE
     Route: 058
  44. HYDROMORPHONE [Suspect]
     Active Substance: HYDROMORPHONE
     Route: 058
  45. HYDROMORPHONE HYDROCHLORIDE [Suspect]
     Active Substance: HYDROMORPHONE HYDROCHLORIDE
     Indication: Product used for unknown indication
     Route: 058
  46. HYDROMORPHONE HYDROCHLORIDE [Suspect]
     Active Substance: HYDROMORPHONE HYDROCHLORIDE
     Indication: Off label use
     Route: 058
  47. HYDROMORPHONE HYDROCHLORIDE [Suspect]
     Active Substance: HYDROMORPHONE HYDROCHLORIDE
     Indication: Intentional product misuse
     Route: 058
  48. HYDROMORPHONE HYDROCHLORIDE [Suspect]
     Active Substance: HYDROMORPHONE HYDROCHLORIDE
     Indication: Analgesic therapy
  49. HYDROMORPHONE HYDROCHLORIDE [Suspect]
     Active Substance: HYDROMORPHONE HYDROCHLORIDE
     Route: 058
  50. HYDROMORPHONE HYDROCHLORIDE [Suspect]
     Active Substance: HYDROMORPHONE HYDROCHLORIDE
     Route: 058
  51. HYDROMORPHONE HYDROCHLORIDE [Suspect]
     Active Substance: HYDROMORPHONE HYDROCHLORIDE
     Route: 058
  52. HYDROMORPHONE HYDROCHLORIDE [Suspect]
     Active Substance: HYDROMORPHONE HYDROCHLORIDE
  53. HYDROMORPHONE HYDROCHLORIDE [Suspect]
     Active Substance: HYDROMORPHONE HYDROCHLORIDE
     Route: 058
  54. HYDROMORPHONE HYDROCHLORIDE [Suspect]
     Active Substance: HYDROMORPHONE HYDROCHLORIDE
     Route: 058
  55. HYDROMORPHONE HYDROCHLORIDE [Suspect]
     Active Substance: HYDROMORPHONE HYDROCHLORIDE
     Route: 058
  56. HYDROMORPHONE HYDROCHLORIDE [Suspect]
     Active Substance: HYDROMORPHONE HYDROCHLORIDE
     Route: 058
  57. HYDROMORPHONE HYDROCHLORIDE [Suspect]
     Active Substance: HYDROMORPHONE HYDROCHLORIDE
     Route: 058
  58. HYDROMORPHONE HYDROCHLORIDE [Suspect]
     Active Substance: HYDROMORPHONE HYDROCHLORIDE
     Route: 058
  59. POTASSIUM CHLORIDE [Suspect]
     Active Substance: POTASSIUM CHLORIDE
     Indication: Product used for unknown indication
  60. POTASSIUM CHLORIDE [Suspect]
     Active Substance: POTASSIUM CHLORIDE
     Indication: Constipation
     Route: 048
  61. ALBUTEROL [Suspect]
     Active Substance: ALBUTEROL
     Indication: Product used for unknown indication
     Dosage: RESPIRATORY (INHALATION)
  62. ALBUTEROL [Suspect]
     Active Substance: ALBUTEROL
     Indication: Off label use
  63. ALBUTEROL [Suspect]
     Active Substance: ALBUTEROL
     Indication: Intentional product misuse
     Dosage: RESPIRATORY (INHALATION)
  64. ALBUTEROL [Suspect]
     Active Substance: ALBUTEROL
     Indication: Chronic obstructive pulmonary disease
  65. ALBUTEROL [Suspect]
     Active Substance: ALBUTEROL
     Dosage: RESPIRATORY (INHALATION)
  66. ALBUTEROL [Suspect]
     Active Substance: ALBUTEROL
     Dosage: RESPIRATORY (INHALATION)
  67. ALBUTEROL [Suspect]
     Active Substance: ALBUTEROL
  68. ALBUTEROL [Suspect]
     Active Substance: ALBUTEROL
  69. ALBUTEROL [Suspect]
     Active Substance: ALBUTEROL
  70. ALBUTEROL [Suspect]
     Active Substance: ALBUTEROL
  71. ALBUTEROL [Suspect]
     Active Substance: ALBUTEROL
  72. ALBUTEROL [Suspect]
     Active Substance: ALBUTEROL
  73. ALBUTEROL [Suspect]
     Active Substance: ALBUTEROL
  74. ALBUTEROL [Suspect]
     Active Substance: ALBUTEROL
     Dosage: RESPIRATORY (INHALATION)
  75. ALBUTEROL [Suspect]
     Active Substance: ALBUTEROL
  76. ALBUTEROL [Suspect]
     Active Substance: ALBUTEROL
  77. ALBUTEROL [Suspect]
     Active Substance: ALBUTEROL
  78. ALBUTEROL [Suspect]
     Active Substance: ALBUTEROL
  79. ALBUTEROL [Suspect]
     Active Substance: ALBUTEROL
  80. ALBUTEROL [Suspect]
     Active Substance: ALBUTEROL
  81. ALBUTEROL [Suspect]
     Active Substance: ALBUTEROL
  82. ALBUTEROL [Suspect]
     Active Substance: ALBUTEROL
  83. ALBUTEROL [Suspect]
     Active Substance: ALBUTEROL
  84. ALBUTEROL [Suspect]
     Active Substance: ALBUTEROL
  85. ALBUTEROL [Suspect]
     Active Substance: ALBUTEROL
  86. ALBUTEROL [Suspect]
     Active Substance: ALBUTEROL
  87. ALBUTEROL [Suspect]
     Active Substance: ALBUTEROL
  88. ALBUTEROL [Suspect]
     Active Substance: ALBUTEROL
  89. ALBUTEROL [Suspect]
     Active Substance: ALBUTEROL
  90. ALBUTEROL [Suspect]
     Active Substance: ALBUTEROL
     Dosage: RESPIRATORY (INHALATION)
  91. ALBUTEROL [Suspect]
     Active Substance: ALBUTEROL
  92. ALBUTEROL [Suspect]
     Active Substance: ALBUTEROL
  93. ALBUTEROL [Suspect]
     Active Substance: ALBUTEROL
  94. ALBUTEROL [Suspect]
     Active Substance: ALBUTEROL
     Dosage: RESPIRATORY (INHALATION)
  95. ALBUTEROL [Suspect]
     Active Substance: ALBUTEROL
     Dosage: RESPIRATORY (INHALATION)
  96. AMIODARONE [Suspect]
     Active Substance: AMIODARONE
     Indication: Ventricular fibrillation
     Route: 042
  97. AMIODARONE [Suspect]
     Active Substance: AMIODARONE
     Indication: Product used for unknown indication
  98. AMIODARONE [Suspect]
     Active Substance: AMIODARONE
     Indication: Off label use
     Route: 042
  99. AMIODARONE [Suspect]
     Active Substance: AMIODARONE
     Indication: Intentional product misuse
     Route: 042
  100. AMIODARONE [Suspect]
     Active Substance: AMIODARONE
     Indication: Drug therapy
     Route: 042
  101. AMIODARONE [Suspect]
     Active Substance: AMIODARONE
  102. AMIODARONE [Suspect]
     Active Substance: AMIODARONE
  103. AMIODARONE [Suspect]
     Active Substance: AMIODARONE
  104. AMIODARONE [Suspect]
     Active Substance: AMIODARONE
  105. AMIODARONE [Suspect]
     Active Substance: AMIODARONE
  106. AMIODARONE [Suspect]
     Active Substance: AMIODARONE
     Route: 042
  107. AMIODARONE [Suspect]
     Active Substance: AMIODARONE
  108. AMIODARONE [Suspect]
     Active Substance: AMIODARONE
  109. AMIODARONE [Suspect]
     Active Substance: AMIODARONE
  110. AMIODARONE [Suspect]
     Active Substance: AMIODARONE
  111. DOCUSATE SODIUM [Suspect]
     Active Substance: DOCUSATE SODIUM
     Indication: Product used for unknown indication
  112. LANSOPRAZOLE [Suspect]
     Active Substance: LANSOPRAZOLE
     Indication: Off label use
     Dosage: CAPSULE, DELAYED RELEASE
     Route: 048
  113. LANSOPRAZOLE [Suspect]
     Active Substance: LANSOPRAZOLE
     Indication: Intentional product misuse
     Route: 048
  114. LANSOPRAZOLE [Suspect]
     Active Substance: LANSOPRAZOLE
     Indication: Antacid therapy
     Route: 048
  115. ONDANSETRON [Suspect]
     Active Substance: ONDANSETRON
     Indication: Vomiting
     Route: 042
  116. ONDANSETRON [Suspect]
     Active Substance: ONDANSETRON
     Indication: Product used for unknown indication
     Route: 042
  117. ONDANSETRON [Suspect]
     Active Substance: ONDANSETRON
     Indication: Off label use
     Route: 042
  118. ONDANSETRON [Suspect]
     Active Substance: ONDANSETRON
     Indication: Nausea
     Route: 042
  119. ONDANSETRON [Suspect]
     Active Substance: ONDANSETRON
     Route: 042
  120. ONDANSETRON [Suspect]
     Active Substance: ONDANSETRON
     Route: 042
  121. ONDANSETRON [Suspect]
     Active Substance: ONDANSETRON
     Route: 042
  122. ONDANSETRON [Suspect]
     Active Substance: ONDANSETRON
     Route: 042
  123. ONDANSETRON [Suspect]
     Active Substance: ONDANSETRON
     Route: 042
  124. ONDANSETRON [Suspect]
     Active Substance: ONDANSETRON
  125. ONDANSETRON [Suspect]
     Active Substance: ONDANSETRON
     Route: 042
  126. ONDANSETRON [Suspect]
     Active Substance: ONDANSETRON
  127. ONDANSETRON [Suspect]
     Active Substance: ONDANSETRON
  128. ONDANSETRON [Suspect]
     Active Substance: ONDANSETRON
     Route: 042
  129. ONDANSETRON [Suspect]
     Active Substance: ONDANSETRON
     Route: 042
  130. ONDANSETRON [Suspect]
     Active Substance: ONDANSETRON
     Route: 042
  131. ONDANSETRON [Suspect]
     Active Substance: ONDANSETRON
     Route: 012
  132. ONDANSETRON [Suspect]
     Active Substance: ONDANSETRON
     Route: 042
  133. ONDANSETRON [Suspect]
     Active Substance: ONDANSETRON
     Route: 042
  134. ONDANSETRON [Suspect]
     Active Substance: ONDANSETRON
     Route: 042
  135. ONDANSETRON [Suspect]
     Active Substance: ONDANSETRON
     Route: 042
  136. ONDANSETRON [Suspect]
     Active Substance: ONDANSETRON
     Route: 042
  137. ONDANSETRON [Suspect]
     Active Substance: ONDANSETRON
     Route: 042
  138. ONDANSETRON [Suspect]
     Active Substance: ONDANSETRON
     Route: 042
  139. ONDANSETRON [Suspect]
     Active Substance: ONDANSETRON
     Route: 042
  140. ONDANSETRON [Suspect]
     Active Substance: ONDANSETRON
     Route: 042
  141. ONDANSETRON [Suspect]
     Active Substance: ONDANSETRON
     Route: 042
  142. ONDANSETRON [Suspect]
     Active Substance: ONDANSETRON
     Route: 042
  143. ONDANSETRON [Suspect]
     Active Substance: ONDANSETRON
     Route: 042
  144. ONDANSETRON [Suspect]
     Active Substance: ONDANSETRON
     Route: 042
  145. ONDANSETRON [Suspect]
     Active Substance: ONDANSETRON
     Route: 042
  146. ONDANSETRON [Suspect]
     Active Substance: ONDANSETRON
     Route: 042
  147. ONDANSETRON [Suspect]
     Active Substance: ONDANSETRON
     Route: 042
  148. ONDANSETRON [Suspect]
     Active Substance: ONDANSETRON
  149. ONDANSETRON [Suspect]
     Active Substance: ONDANSETRON
     Route: 042
  150. ONDANSETRON [Suspect]
     Active Substance: ONDANSETRON
     Route: 048
  151. ONDANSETRON [Suspect]
     Active Substance: ONDANSETRON
     Route: 048
  152. CEFTRIAXONE SODIUM [Suspect]
     Active Substance: CEFTRIAXONE SODIUM
     Indication: Bacterial infection
     Route: 042
  153. CEFTRIAXONE SODIUM [Suspect]
     Active Substance: CEFTRIAXONE SODIUM
     Indication: Bacterial infection
     Route: 042
  154. CEFTRIAXONE SODIUM [Suspect]
     Active Substance: CEFTRIAXONE SODIUM
  155. CEFTRIAXONE SODIUM [Suspect]
     Active Substance: CEFTRIAXONE SODIUM
  156. DOBUTAMINE [Suspect]
     Active Substance: DOBUTAMINE HYDROCHLORIDE
     Indication: Product used for unknown indication
     Route: 042
  157. DOBUTAMINE [Suspect]
     Active Substance: DOBUTAMINE HYDROCHLORIDE
     Indication: Off label use
     Route: 042
  158. DOBUTAMINE [Suspect]
     Active Substance: DOBUTAMINE HYDROCHLORIDE
     Indication: Cardiogenic shock
  159. DOBUTAMINE [Suspect]
     Active Substance: DOBUTAMINE HYDROCHLORIDE
  160. METRONIDAZOLE [Suspect]
     Active Substance: METRONIDAZOLE
     Indication: Bacterial infection
     Route: 048
  161. METRONIDAZOLE [Suspect]
     Active Substance: METRONIDAZOLE
  162. METRONIDAZOLE [Suspect]
     Active Substance: METRONIDAZOLE
  163. METRONIDAZOLE [Suspect]
     Active Substance: METRONIDAZOLE
  164. METRONIDAZOLE [Suspect]
     Active Substance: METRONIDAZOLE
  165. METRONIDAZOLE [Suspect]
     Active Substance: METRONIDAZOLE
     Route: 048
  166. METRONIDAZOLE [Suspect]
     Active Substance: METRONIDAZOLE
     Route: 048
  167. METRONIDAZOLE [Suspect]
     Active Substance: METRONIDAZOLE
     Route: 048
  168. METRONIDAZOLE [Suspect]
     Active Substance: METRONIDAZOLE
     Route: 048
  169. METRONIDAZOLE [Suspect]
     Active Substance: METRONIDAZOLE
     Route: 048
  170. METRONIDAZOLE [Suspect]
     Active Substance: METRONIDAZOLE
  171. NOREPINEPHRINE [Suspect]
     Active Substance: NOREPINEPHRINE
     Indication: Stress
     Route: 048
  172. NOREPINEPHRINE [Suspect]
     Active Substance: NOREPINEPHRINE
     Route: 042
  173. NOREPINEPHRINE [Suspect]
     Active Substance: NOREPINEPHRINE
     Route: 042
  174. NOREPINEPHRINE [Suspect]
     Active Substance: NOREPINEPHRINE
     Route: 048
  175. NOREPINEPHRINE [Suspect]
     Active Substance: NOREPINEPHRINE
  176. NOREPINEPHRINE [Suspect]
     Active Substance: NOREPINEPHRINE
     Route: 048
  177. SODIUM BICARBONATE [Suspect]
     Active Substance: SODIUM BICARBONATE
     Indication: Constipation
  178. SIMVASTATIN [Suspect]
     Active Substance: SIMVASTATIN
     Indication: Vitamin supplementation
  179. SIMVASTATIN [Suspect]
     Active Substance: SIMVASTATIN
     Indication: Product used for unknown indication
  180. SIMVASTATIN [Suspect]
     Active Substance: SIMVASTATIN
     Indication: Off label use
     Route: 048
  181. SIMVASTATIN [Suspect]
     Active Substance: SIMVASTATIN
     Indication: Blood cholesterol increased
     Route: 048
  182. SIMVASTATIN [Suspect]
     Active Substance: SIMVASTATIN
  183. THEOPHYLLINE [Suspect]
     Active Substance: THEOPHYLLINE
     Indication: Off label use
  184. THEOPHYLLINE [Suspect]
     Active Substance: THEOPHYLLINE
     Indication: Intentional product misuse
  185. THEOPHYLLINE [Suspect]
     Active Substance: THEOPHYLLINE
     Indication: Off label use
  186. THEOPHYLLINE [Suspect]
     Active Substance: THEOPHYLLINE
     Indication: Intentional product misuse
  187. THEOPHYLLINE [Suspect]
     Active Substance: THEOPHYLLINE
  188. THEOPHYLLINE [Suspect]
     Active Substance: THEOPHYLLINE
  189. THEOPHYLLINE [Suspect]
     Active Substance: THEOPHYLLINE
  190. THEOPHYLLINE [Suspect]
     Active Substance: THEOPHYLLINE
  191. THEOPHYLLINE [Suspect]
     Active Substance: THEOPHYLLINE
  192. THEOPHYLLINE [Suspect]
     Active Substance: THEOPHYLLINE
  193. VASOPRESSIN [Suspect]
     Active Substance: VASOPRESSIN
     Indication: Thrombosis
     Route: 042
  194. VASOPRESSIN [Suspect]
     Active Substance: VASOPRESSIN
     Indication: Drug therapy
  195. VASOPRESSIN [Suspect]
     Active Substance: VASOPRESSIN
     Route: 017
  196. VASOPRESSIN [Suspect]
     Active Substance: VASOPRESSIN
     Route: 042
  197. VASOPRESSIN [Suspect]
     Active Substance: VASOPRESSIN
  198. VASOPRESSIN [Suspect]
     Active Substance: VASOPRESSIN
     Route: 042
  199. VITAMIN C [Suspect]
     Active Substance: ASCORBIC ACID
     Indication: Constipation
     Route: 048
  200. VITAMIN K1 [Suspect]
     Active Substance: PHYTONADIONE
     Indication: Vitamin supplementation
     Route: 042
  201. VITAMIN K1 [Suspect]
     Active Substance: PHYTONADIONE
  202. VITAMIN K1 [Suspect]
     Active Substance: PHYTONADIONE
     Route: 042
  203. VITAMIN K1 [Suspect]
     Active Substance: PHYTONADIONE
     Route: 042

REACTIONS (8)
  - Pneumonia [Fatal]
  - Transaminases increased [Fatal]
  - Oedema peripheral [Fatal]
  - Total lung capacity decreased [Fatal]
  - Musculoskeletal stiffness [Fatal]
  - Lung opacity [Fatal]
  - Pleural effusion [Fatal]
  - Blood creatine increased [Fatal]
